FAERS Safety Report 10382356 (Version 2)
Quarter: 2014Q3

REPORT INFORMATION
  Report Type: Spontaneous
  Country: US (occurrence: None)
  Receive Date: 20140811
  Receipt Date: 20140820
  Transmission Date: 20150326
  Serious: Yes (Other)
  Sender: FDA-Public Use
  Company Number: 2014COV00077

PATIENT
  Age: 59 Year
  Sex: Female
  Weight: 89.8 kg

DRUGS (11)
  1. PREDNISONE. [Concomitant]
     Active Substance: PREDNISONE
  2. PROAIR (ALBUTEROL INHALATION) [Concomitant]
  3. LASIX [Concomitant]
     Active Substance: FUROSEMIDE
  4. FLONASE (FLUTICASONE) [Concomitant]
  5. REVATIO (SILDENAFIL CITRATE) [Concomitant]
  6. PLAVIX (CLOPIDOGREL BISULFATE) [Concomitant]
  7. CLARITIN [Concomitant]
     Active Substance: LORATADINE
  8. MYCOPHENOLATE [Concomitant]
     Active Substance: MYCOPHENOLIC ACID
  9. LOTREL (BENAZEPRIL HYDROCHLORIDE AND AMLODIPINE BESYLATE) [Concomitant]
  10. PLAQUENIL [Suspect]
     Active Substance: HYDROXYCHLOROQUINE SULFATE
     Indication: SYSTEMIC LUPUS ERYTHEMATOSUS
     Dosage: 75MG, 2X/DAY, ORAL
     Route: 048
     Dates: end: 2009
  11. ZETIA [Concomitant]
     Active Substance: EZETIMIBE

REACTIONS (7)
  - Glaucoma [None]
  - Drug hypersensitivity [None]
  - Cataract [None]
  - Blepharitis [None]
  - Hypersensitivity [None]
  - Eyelid pain [None]
  - Ocular hypertension [None]
